FAERS Safety Report 6141575-4 (Version None)
Quarter: 2009Q2

REPORT INFORMATION
  Report Type: 
  Country: None (occurrence: None)
  Receive Date: 20090402
  Receipt Date: 20090325
  Transmission Date: 20091009
  Serious: Yes (Congenital Anomaly)
  Sender: FDA-Public Use
  Company Number: A0771904A

PATIENT
  Sex: Male
  Weight: 3 kg

DRUGS (3)
  1. COMBIVIR [Suspect]
     Indication: HIV INFECTION
     Dosage: 2TAB PER DAY
     Dates: start: 20070828, end: 20080122
  2. ZIDOVUDINE [Suspect]
     Indication: ANTIVIRAL PROPHYLAXIS
     Dates: start: 20080122, end: 20080122
  3. KALETRA [Concomitant]
     Indication: HIV INFECTION
     Dosage: 1500MG PER DAY
     Dates: start: 20070828, end: 20071020

REACTIONS (4)
  - CONGENITAL CENTRAL NERVOUS SYSTEM ANOMALY [None]
  - DRUG EXPOSURE DURING PREGNANCY [None]
  - PREMATURE BABY [None]
  - TRISOMY 8 [None]
